FAERS Safety Report 6328016-9 (Version None)
Quarter: 2009Q3

REPORT INFORMATION
  Report Type: 
  Country: None (occurrence: None)
  Receive Date: 20090825
  Receipt Date: 20081010
  Transmission Date: 20100115
  Serious: No
  Sender: FDA-Public Use
  Company Number: US-ABBOTT-08P-163-0481160-00

PATIENT
  Sex: Female
  Weight: 86.26 kg

DRUGS (4)
  1. SYNTHROID [Suspect]
     Indication: HYPOTHYROIDISM
     Route: 048
     Dates: start: 19950101
  2. ASPIRIN [Concomitant]
     Indication: DRUG USE FOR UNKNOWN INDICATION
     Dosage: AS REQUIRED
  3. PARACETAMOL [Concomitant]
     Indication: DRUG USE FOR UNKNOWN INDICATION
     Dosage: AS REQUIRED
  4. INHALER [Concomitant]
     Indication: ASTHMA
     Dosage: AS REQUIRED

REACTIONS (5)
  - FATIGUE [None]
  - IRRITABILITY [None]
  - MENSTRUAL DISORDER [None]
  - TRICHORRHEXIS [None]
  - WEIGHT INCREASED [None]
